FAERS Safety Report 6837036-7 (Version None)
Quarter: 2010Q3

REPORT INFORMATION
  Report Type: 
  Country: None (occurrence: None)
  Receive Date: 20100713
  Receipt Date: 20070427
  Transmission Date: 20110219
  Serious: No
  Sender: FDA-Public Use
  Company Number: US-PFIZER INC-2007035379

PATIENT
  Sex: Female
  Weight: 77.272 kg

DRUGS (6)
  1. CHANTIX [Suspect]
     Indication: SMOKING CESSATION THERAPY
     Route: 048
     Dates: start: 20070417
  2. LAMICTAL [Concomitant]
     Route: 048
  3. RISPERIDONE [Concomitant]
     Route: 048
  4. BUSPAR [Concomitant]
     Route: 048
  5. ATIVAN [Concomitant]
     Route: 048
  6. KLONOPIN [Concomitant]
     Route: 048

REACTIONS (2)
  - ABNORMAL DREAMS [None]
  - INSOMNIA [None]
